FAERS Safety Report 8512262-X (Version None)
Quarter: 2012Q3

REPORT INFORMATION
  Report Type: 
  Country: None (occurrence: None)
  Receive Date: 20120716
  Receipt Date: 20120710
  Transmission Date: 20120928
  Serious: Yes (Hospitalization, Other)
  Sender: FDA-Public Use
  Company Number: PHEH2012US011998

PATIENT
  Sex: Female

DRUGS (4)
  1. GILENYA [Suspect]
     Indication: MULTIPLE SCLEROSIS
     Dosage: 0.5 MG, QD
     Route: 048
     Dates: start: 20120611, end: 20120628
  2. OXYBUTYNIN [Concomitant]
  3. METOPROLOL TARTRATE [Concomitant]
  4. GABAPENTIN [Concomitant]

REACTIONS (10)
  - FATIGUE [None]
  - BACK PAIN [None]
  - CHEST PAIN [None]
  - PHOTOPHOBIA [None]
  - VOMITING [None]
  - FULL BLOOD COUNT DECREASED [None]
  - MEMORY IMPAIRMENT [None]
  - CANDIDIASIS [None]
  - HEADACHE [None]
  - CONFUSIONAL STATE [None]
